FAERS Safety Report 24026952 (Version 3)
Quarter: 2024Q3

REPORT INFORMATION
  Report Type: Report from Study
  Country: AU (occurrence: AU)
  Receive Date: 20240628
  Receipt Date: 20240710
  Transmission Date: 20241016
  Serious: No
  Sender: ROCHE
  Company Number: AU-ROCHE-3567364

PATIENT
  Age: 78 Year
  Sex: Female

DRUGS (13)
  1. ALECTINIB [Suspect]
     Active Substance: ALECTINIB
     Indication: Lung cancer metastatic
     Route: 048
     Dates: start: 20220318
  2. ALECTINIB [Suspect]
     Active Substance: ALECTINIB
     Route: 048
     Dates: start: 20220608
  3. AMLODIPINE [Concomitant]
     Active Substance: AMLODIPINE BESYLATE
  4. FERROUS FUMARATE [Concomitant]
     Active Substance: FERROUS FUMARATE
  5. INDAPAMIDE [Concomitant]
     Active Substance: INDAPAMIDE
  6. PANTOPRAZOLE [Concomitant]
     Active Substance: PANTOPRAZOLE
  7. PANADOL [Concomitant]
     Active Substance: ACETAMINOPHEN
  8. LEVETIRACETAM [Concomitant]
     Active Substance: LEVETIRACETAM
  9. CYANOCOBALAMIN [Concomitant]
     Active Substance: CYANOCOBALAMIN
  10. TAPENTADOL [Concomitant]
     Active Substance: TAPENTADOL
  11. POTASSIUM [Concomitant]
     Active Substance: POTASSIUM
  12. OXYCODONE HYDROCHLORIDE [Concomitant]
     Active Substance: OXYCODONE HYDROCHLORIDE
  13. EVENING PRIMROSE [Concomitant]

REACTIONS (2)
  - Bursitis [Not Recovered/Not Resolved]
  - Dizziness [Not Recovered/Not Resolved]

NARRATIVE: CASE EVENT DATE: 20231020
